FAERS Safety Report 24276039 (Version 1)
Quarter: 2024Q3

REPORT INFORMATION
  Report Type: Report from Study
  Country: US (occurrence: None)
  Receive Date: 20240903
  Receipt Date: 20240903
  Transmission Date: 20241016
  Serious: Yes (Life-Threatening)
  Sender: ASTRAZENECA
  Company Number: 2024A195811

PATIENT
  Sex: Female

DRUGS (17)
  1. TEZSPIRE [Suspect]
     Active Substance: TEZEPELUMAB-EKKO
     Dosage: 210 MG/1.91 MI SYRING (110 MG/ML) SIG: PER. AMGEN 210MG EVERY 4 WEEKS
  2. PULMICORT TURBUHALER [Suspect]
     Active Substance: BUDESONIDE
     Route: 055
  3. FASENRA [Suspect]
     Active Substance: BENRALIZUMAB
     Route: 058
  4. EPINEPHRINE [Concomitant]
     Active Substance: EPINEPHRINE
  5. PREDNISONE [Concomitant]
     Active Substance: PREDNISONE
  6. DULOXETINE HEL [Concomitant]
  7. VITAMIN D3 [Concomitant]
     Active Substance: CHOLECALCIFEROL
     Dosage: 400 UNIT 2 CAPSULES
  8. OXYCODONE [Concomitant]
     Active Substance: OXYCODONE
  9. NOVOLOG [Concomitant]
     Active Substance: INSULIN ASPART
     Dosage: 70-30 VIAL 100 UNIT/ML
  10. NITROSTAT [Concomitant]
     Active Substance: NITROGLYCERIN
  11. FUROSEMIDE [Concomitant]
     Active Substance: FUROSEMIDE
  12. CETIRIZINE HCL [Concomitant]
     Active Substance: CETIRIZINE HYDROCHLORIDE
  13. METOPROLOL SUCCINATE [Concomitant]
     Active Substance: METOPROLOL SUCCINATE
  14. LEVOTHYROXINE [Concomitant]
     Active Substance: LEVOTHYROXINE\LEVOTHYROXINE SODIUM
  15. HYDROCHLOROTHIAZIDE [Concomitant]
     Active Substance: HYDROCHLOROTHIAZIDE
  16. ESTRADIOL [Concomitant]
     Active Substance: ESTRADIOL
  17. MONTELUKAST SODIUM [Concomitant]
     Active Substance: MONTELUKAST\MONTELUKAST SODIUM

REACTIONS (1)
  - Hypersensitivity [Unknown]
